FAERS Safety Report 6026653-2 (Version None)
Quarter: 2008Q4

REPORT INFORMATION
  Report Type: 
  Country: None (occurrence: None)
  Receive Date: 20081231
  Receipt Date: 20081218
  Transmission Date: 20090506
  Serious: Yes (Death)
  Sender: FDA-Public Use
  Company Number: 2008AL012450

PATIENT
  Sex: Male

DRUGS (1)
  1. DIGOXIN [Suspect]
     Indication: HEART RATE IRREGULAR
     Dosage: PO
     Route: 048

REACTIONS (4)
  - ANXIETY [None]
  - INJURY [None]
  - PAIN [None]
  - THERAPEUTIC AGENT TOXICITY [None]
